FAERS Safety Report 18777878 (Version 1)
Quarter: 2021Q1

REPORT INFORMATION
  Report Type: Spontaneous
  Country: US (occurrence: US)
  Receive Date: 20210122
  Receipt Date: 20210122
  Transmission Date: 20210419
  Serious: Yes (Other)
  Sender: FDA-Public Use
  Company Number: US-ALEMBIC PHARMACUETICALS LIMITED-2021SCAL000028

PATIENT

DRUGS (6)
  1. AMANTADINE HYDROCHLORIDE. [Suspect]
     Active Substance: AMANTADINE HYDROCHLORIDE
     Indication: DYSKINESIA
     Dosage: 100 MILLIGRAM, OD
  2. AMANTADINE HYDROCHLORIDE. [Suspect]
     Active Substance: AMANTADINE HYDROCHLORIDE
     Dosage: 100 MILLIGRAM, BID
  3. BUPROPION. [Concomitant]
     Active Substance: BUPROPION
     Indication: PRODUCT USED FOR UNKNOWN INDICATION
     Dosage: UNK
  4. CARBIDOPA AND LEVODOPA [Suspect]
     Active Substance: CARBIDOPA\LEVODOPA
     Indication: PARKINSON^S DISEASE
     Dosage: UNK
  5. DESIPRAMINE [Concomitant]
     Active Substance: DESIPRAMINE
     Indication: PRODUCT USED FOR UNKNOWN INDICATION
     Dosage: UNK
  6. GABAPENTIN. [Concomitant]
     Active Substance: GABAPENTIN
     Indication: PRODUCT USED FOR UNKNOWN INDICATION
     Dosage: UNK

REACTIONS (4)
  - Dyskinesia [Recovered/Resolved]
  - Myoclonus [Recovered/Resolved]
  - Asterixis [Recovered/Resolved]
  - Tremor [Recovered/Resolved]
